FAERS Safety Report 17307701 (Version 2)
Quarter: 2022Q2

REPORT INFORMATION
  Report Type: Spontaneous
  Country: US (occurrence: US)
  Receive Date: 20200123
  Receipt Date: 20220414
  Transmission Date: 20220720
  Serious: Yes (Life-Threatening, Hospitalization, Other)
  Sender: FDA-Public Use
  Company Number: US-SUN PHARMACEUTICAL INDUSTRIES LTD-2020R1-233923

PATIENT
  Age: 79 Year
  Sex: Female

DRUGS (1)
  1. ATORVASTATIN [Suspect]
     Active Substance: ATORVASTATIN
     Indication: Cardiac disorder
     Dosage: UNK, DAILY (40 TO 80 MG)
     Route: 065

REACTIONS (4)
  - Rhabdomyolysis [Unknown]
  - Hypoxia [Unknown]
  - Myopathy [Unknown]
  - Respiratory failure [Unknown]
